FAERS Safety Report 12118246 (Version 2)
Quarter: 2016Q4

REPORT INFORMATION
  Report Type: Spontaneous
  Country: US (occurrence: US)
  Receive Date: 20160226
  Receipt Date: 20161025
  Transmission Date: 20170206
  Serious: Yes (Hospitalization, Other)
  Sender: FDA-Public Use
  Company Number: US-ALKEM-001488

PATIENT
  Age: 3 Month
  Weight: 6.1 kg

DRUGS (4)
  1. LINEZOLID. [Suspect]
     Active Substance: LINEZOLID
     Indication: PNEUMONIA
     Route: 042
  2. DOPAMINE [Interacting]
     Active Substance: DOPAMINE\DOPAMINE HYDROCHLORIDE
     Indication: BLOOD PRESSURE MANAGEMENT
     Dosage: 6 TO 8 UG/KG/MIN
     Route: 042
  3. PIPERACILLIN/TAZOBACTAM [Concomitant]
  4. CIPROFLOXACIN. [Concomitant]
     Active Substance: CIPROFLOXACIN

REACTIONS (3)
  - Drug interaction [Unknown]
  - Hypertension [Recovered/Resolved]
  - Tachycardia [Recovered/Resolved]
